FAERS Safety Report 8923421 (Version 1)
Quarter: 2012Q4

REPORT INFORMATION
  Report Type: Spontaneous
  Country: FR (occurrence: None)
  Receive Date: 20121114
  Receipt Date: 20121114
  Transmission Date: 20130627
  Serious: Yes (Death, Hospitalization)
  Sender: FDA-Public Use
  Company Number: 2012-17633

PATIENT
  Age: 69 Year
  Sex: Female

DRUGS (5)
  1. ALPRAZOLAM (UNKNOWN) [Suspect]
     Indication: PSYCHOSIS
     Dosage: 60 tablet
     Route: 048
  2. EFFEXOR (VENLAFAXINE HYDROCHLORIDE) UNKNOWN [Suspect]
     Indication: PSYCHOSIS
     Dosage: 30 tablet
     Route: 048
  3. TERALITHE [Suspect]
     Indication: PSYCHOSIS
     Dosage: 60 tablet
     Route: 048
  4. TERCIAN [Suspect]
     Indication: DRUG USE FOR UNKNOWN INDICATION
     Dosage: 60 tablet
     Route: 048
  5. GLUCOVANCE [Suspect]
     Indication: DRUG USE FOR UNKNOWN INDICATION
     Dosage: 60 tablet
     Route: 048

REACTIONS (14)
  - Intentional overdose [None]
  - Toxicity to various agents [None]
  - Multi-organ failure [None]
  - Disseminated intravascular coagulation [None]
  - Renal failure acute [None]
  - Hypoxia [None]
  - Lactic acidosis [None]
  - Coma [None]
  - Hypotension [None]
  - Hypothermia [None]
  - Shock [None]
  - Bradycardia [None]
  - Metabolic acidosis [None]
  - Lung disorder [None]
